FAERS Safety Report 13047899 (Version 1)
Quarter: 2016Q4

REPORT INFORMATION
  Report Type: Report from Study
  Country: BR (occurrence: BR)
  Receive Date: 20161220
  Receipt Date: 20161220
  Transmission Date: 20170207
  Serious: Yes (Life-Threatening, Hospitalization, Other)
  Sender: FDA-Public Use
  Company Number: PHHY2016BR173317

PATIENT
  Sex: Female
  Weight: 96 kg

DRUGS (9)
  1. ASA [Concomitant]
     Active Substance: ASPIRIN
     Indication: CARDIOVASCULAR DISORDER
  2. SIMVASTATIN. [Concomitant]
     Active Substance: SIMVASTATIN
     Indication: BLOOD TRIGLYCERIDES ABNORMAL
  3. ASA [Concomitant]
     Active Substance: ASPIRIN
     Indication: VEIN DISORDER
     Dosage: 100 MG, BID
     Route: 048
  4. ASA [Concomitant]
     Active Substance: ASPIRIN
     Indication: SWELLING
  5. LOSARTAN. [Concomitant]
     Active Substance: LOSARTAN
     Indication: BLOOD PRESSURE ABNORMAL
     Dosage: 50 MG, QD
     Route: 048
  6. SIMVASTATIN. [Concomitant]
     Active Substance: SIMVASTATIN
     Indication: BLOOD CHOLESTEROL INCREASED
     Dosage: 20 MG, QD
     Route: 048
  7. GALVUS [Suspect]
     Active Substance: VILDAGLIPTIN
     Indication: DIABETES MELLITUS
     Dosage: 50 MG, QD
     Route: 048
  8. METFORMIN [Suspect]
     Active Substance: METFORMIN HYDROCHLORIDE
     Indication: DIABETES MELLITUS
     Dosage: 850 MG, TID
     Route: 048
  9. GALVUS MET [Suspect]
     Active Substance: METFORMIN HYDROCHLORIDE\VILDAGLIPTIN
     Indication: DIABETES MELLITUS
     Route: 065

REACTIONS (10)
  - Myocardial infarction [Recovering/Resolving]
  - Blood pressure diastolic increased [Unknown]
  - Syncope [Unknown]
  - Stress [Unknown]
  - Pain [Recovering/Resolving]
  - Sleep apnoea syndrome [Unknown]
  - Abasia [Unknown]
  - Crying [Unknown]
  - Blood glucose increased [Recovering/Resolving]
  - Malaise [Unknown]
